FAERS Safety Report 8987450 (Version 2)
Quarter: 2013Q2

REPORT INFORMATION
  Report Type: Spontaneous
  Country: US (occurrence: US)
  Receive Date: 20121227
  Receipt Date: 20130614
  Transmission Date: 20140414
  Serious: Yes (Other)
  Sender: FDA-Public Use
  Company Number: US-ASTRAZENECA-2012SE94194

PATIENT
  Age: 425 Month
  Sex: Male
  Weight: 89.8 kg

DRUGS (11)
  1. PULMICORT FLEXHALER [Suspect]
     Indication: ASTHMA
     Dosage: 180 MCG, ONE PUFF BID
     Route: 055
     Dates: start: 201103
  2. MORPHINE [Suspect]
     Route: 065
  3. VENTOLIN [Concomitant]
     Indication: ASTHMA
     Dosage: AS REQUIRED
     Route: 055
  4. ALBUTEROL [Concomitant]
     Indication: ASTHMA
     Route: 055
  5. ANDROGEL [Concomitant]
     Indication: BLOOD TESTOSTERONE DECREASED
     Dosage: 3 PUMPS, CONTINUOUSLY
     Route: 061
     Dates: start: 201206
  6. ENBREL [Concomitant]
     Indication: PSORIATIC ARTHROPATHY
     Dates: start: 2003
  7. ENBREL [Concomitant]
     Indication: BACK PAIN
     Dates: start: 2003
  8. HUMIRA [Concomitant]
     Indication: PSORIATIC ARTHROPATHY
     Dates: start: 2003
  9. HUMIRA [Concomitant]
     Indication: BACK PAIN
     Dates: start: 2003
  10. HYDROCODONE [Concomitant]
  11. SKELAXIN [Concomitant]

REACTIONS (5)
  - Salivary gland neoplasm [Not Recovered/Not Resolved]
  - Pituitary tumour [Unknown]
  - Nasopharyngitis [Recovered/Resolved]
  - Blood testosterone decreased [Not Recovered/Not Resolved]
  - Intentional drug misuse [Unknown]
